FAERS Safety Report 15014542 (Version 4)
Quarter: 2018Q4

REPORT INFORMATION
  Report Type: Report from Study
  Country: US (occurrence: US)
  Receive Date: 20180615
  Receipt Date: 20181106
  Transmission Date: 20190204
  Serious: Yes (Other)
  Sender: FDA-Public Use
  Company Number: PHEH2018US023748

PATIENT
  Sex: Female

DRUGS (3)
  1. COSENTYX [Suspect]
     Active Substance: SECUKINUMAB
     Dosage: 300 MG, QMO
     Route: 058
  2. COSENTYX [Suspect]
     Active Substance: SECUKINUMAB
     Indication: PSORIASIS
     Dosage: 300 MG, QW
     Route: 065
  3. METHOTREXATE. [Concomitant]
     Active Substance: METHOTREXATE
     Indication: PRODUCT USED FOR UNKNOWN INDICATION
     Route: 065

REACTIONS (17)
  - Dyspnoea [Unknown]
  - Injection site haemorrhage [Unknown]
  - Bronchitis mycoplasmal [Unknown]
  - Psoriasis [Unknown]
  - Gait disturbance [Unknown]
  - Spinal osteoarthritis [Unknown]
  - Tooth infection [Unknown]
  - Weight decreased [Unknown]
  - Intervertebral disc protrusion [Unknown]
  - Pruritus [Unknown]
  - Injection site discolouration [Unknown]
  - Back pain [Unknown]
  - Skin haemorrhage [Unknown]
  - Mass [Unknown]
  - Fatigue [Unknown]
  - Pain [Unknown]
  - Dry skin [Unknown]
